FAERS Safety Report 8921094 (Version 1)
Quarter: 2012Q4

REPORT INFORMATION
  Report Type: 
  Country: US (occurrence: US)
  Receive Date: 20121123
  Receipt Date: 20121123
  Transmission Date: 20130627
  Serious: No
  Sender: FDA-Public Use
  Company Number: US-009507513-1211USA002455

PATIENT
  Age: 35 Year
  Sex: Female
  Weight: 54.42 kg

DRUGS (2)
  1. NUVARING [Suspect]
     Indication: CONTRACEPTION
     Dosage: 1 DF, UNK
     Route: 067
     Dates: start: 20121026, end: 20121028
  2. LEVOTHYROXINE SODIUM [Concomitant]

REACTIONS (2)
  - Muscle spasms [Recovered/Resolved]
  - Metrorrhagia [Not Recovered/Not Resolved]
